FAERS Safety Report 7680618-3 (Version None)
Quarter: 2011Q3

REPORT INFORMATION
  Report Type: 
  Country: None (occurrence: None)
  Receive Date: 20110812
  Receipt Date: 20110802
  Transmission Date: 20111222
  Serious: Yes (Other)
  Sender: FDA-Public Use
  Company Number: US-ROCHE-512828

PATIENT
  Sex: Female
  Weight: 59 kg

DRUGS (2)
  1. ACCUTANE [Suspect]
     Indication: ACNE
     Route: 048
     Dates: start: 20000209, end: 20000525
  2. BIRTH CONTROL PILLS [Concomitant]

REACTIONS (20)
  - GASTROOESOPHAGEAL REFLUX DISEASE [None]
  - INSOMNIA [None]
  - CERVIX CARCINOMA STAGE 0 [None]
  - ARTHRALGIA [None]
  - ANAEMIA [None]
  - CROHN'S DISEASE [None]
  - ILL-DEFINED DISORDER [None]
  - FIBROADENOMA OF BREAST [None]
  - PROCTITIS [None]
  - FEELING ABNORMAL [None]
  - COLITIS ULCERATIVE [None]
  - IRRITABLE BOWEL SYNDROME [None]
  - CONSTIPATION [None]
  - PYREXIA [None]
  - INFLAMMATORY BOWEL DISEASE [None]
  - COUGH [None]
  - HAEMORRHOIDS [None]
  - ANXIETY [None]
  - FEAR [None]
  - DEPRESSION [None]
